FAERS Safety Report 9611842 (Version 1)
Quarter: 2013Q4

REPORT INFORMATION
  Report Type: Report from Study
  Country: AR (occurrence: AR)
  Receive Date: 20131010
  Receipt Date: 20131010
  Transmission Date: 20140711
  Serious: Yes (Hospitalization)
  Sender: FDA-Public Use
  Company Number: PHHY2013AR113453

PATIENT
  Sex: Male

DRUGS (2)
  1. ONBREZ [Suspect]
     Indication: CHRONIC OBSTRUCTIVE PULMONARY DISEASE
     Dosage: UNK UKN, UNK
  2. ANTICOAGULANTS [Concomitant]
     Dosage: UNK UKN, UNK

REACTIONS (2)
  - Pneumonia [Recovered/Resolved]
  - Intestinal haemorrhage [Recovered/Resolved]
